FAERS Safety Report 24030117 (Version 4)
Quarter: 2024Q3

REPORT INFORMATION
  Report Type: Report from Study
  Country: CN (occurrence: CN)
  Receive Date: 20240628
  Receipt Date: 20240731
  Transmission Date: 20241017
  Serious: Yes (Hospitalization)
  Sender: EISAI
  Company Number: CN-Eisai-EC-2024-168714

PATIENT
  Age: 59 Year
  Sex: Male
  Weight: 66 kg

DRUGS (13)
  1. LENVATINIB [Suspect]
     Active Substance: LENVATINIB
     Indication: Hepatocellular carcinoma
     Route: 048
     Dates: start: 20230330, end: 20240610
  2. LENVATINIB [Suspect]
     Active Substance: LENVATINIB
     Route: 048
     Dates: start: 20240625, end: 20240704
  3. TORIPALIMAB [Suspect]
     Active Substance: TORIPALIMAB
     Indication: Hepatocellular carcinoma
     Dosage: 240MG/PLACEBO
     Route: 042
     Dates: start: 20230330, end: 20240219
  4. TORIPALIMAB [Suspect]
     Active Substance: TORIPALIMAB
     Dosage: 240MG/PLACEBO
     Route: 042
     Dates: start: 20240307, end: 20240531
  5. TORIPALIMAB [Suspect]
     Active Substance: TORIPALIMAB
     Dosage: 240MG/PLACEBO
     Route: 042
     Dates: start: 20240625, end: 20240625
  6. ENTECAVIR [Concomitant]
     Active Substance: ENTECAVIR
     Route: 048
     Dates: start: 2014
  7. NIFEDIPINE [Concomitant]
     Active Substance: NIFEDIPINE
     Indication: Hypertension
     Route: 048
     Dates: start: 20230809
  8. Yi Shen Hua Shi [Concomitant]
     Indication: Proteinuria
     Route: 048
     Dates: start: 20231114
  9. LEVOTHYROXINE SODIUM [Concomitant]
     Active Substance: LEVOTHYROXINE SODIUM
     Indication: Hypothyroidism
     Route: 048
     Dates: start: 20231215
  10. LEVOFLOXACIN HYDROCHLORIDE [Concomitant]
     Active Substance: LEVOFLOXACIN HYDROCHLORIDE
     Dates: start: 20240606, end: 20240608
  11. FUROSEMIDE [Concomitant]
     Active Substance: FUROSEMIDE
     Indication: Dysuria
     Route: 048
     Dates: start: 20240609, end: 20240609
  12. FINASTERIDE [Concomitant]
     Active Substance: FINASTERIDE
     Indication: Dysuria
     Route: 048
     Dates: start: 20240609, end: 20240610
  13. Qian Lie Long Bi Tong [Concomitant]
     Indication: Dysuria
     Route: 048
     Dates: start: 20240609, end: 20240610

REACTIONS (1)
  - Hyponatraemia [Recovered/Resolved]

NARRATIVE: CASE EVENT DATE: 20240611
